FAERS Safety Report 8216217-4 (Version None)
Quarter: 2012Q1

REPORT INFORMATION
  Report Type: 
  Country: None (occurrence: None)
  Receive Date: 20120316
  Receipt Date: 20120306
  Transmission Date: 20120608
  Serious: Yes (Hospitalization)
  Sender: FDA-Public Use
  Company Number: ES-GLAXOSMITHKLINE-B0787673A

PATIENT
  Age: 34 Year
  Sex: Female

DRUGS (1)
  1. LAMICTAL [Suspect]
     Indication: MIGRAINE WITH AURA
     Route: 048
     Dates: start: 20110403, end: 20110425

REACTIONS (7)
  - CONJUNCTIVITIS [None]
  - LIP OEDEMA [None]
  - RASH [None]
  - APHTHOUS STOMATITIS [None]
  - OEDEMA GENITAL [None]
  - PRURITUS GENITAL [None]
  - STEVENS-JOHNSON SYNDROME [None]
